FAERS Safety Report 6652483-4 (Version None)
Quarter: 2010Q1

REPORT INFORMATION
  Report Type: 
  Country: None (occurrence: None)
  Receive Date: 20100323
  Receipt Date: 20100310
  Transmission Date: 20100710
  Serious: Yes (Death)
  Sender: FDA-Public Use
  Company Number: 2009AP004620

PATIENT
  Age: 30 Year
  Sex: Male

DRUGS (6)
  1. SERTRALINE HYDROCHLORIDE [Suspect]
     Indication: DEPRESSION
     Dosage: 100 MG;PO
     Route: 048
     Dates: start: 20081101, end: 20090301
  2. SERTRALINE HYDROCHLORIDE [Suspect]
     Indication: PERSONALITY DISORDER
     Dosage: 100 MG;PO
     Route: 048
     Dates: start: 20081101, end: 20090301
  3. QUETIAPINE FUMARATE [Suspect]
     Indication: DEPRESSION
     Dosage: 200 MG;PO
     Route: 048
     Dates: start: 20081101, end: 20090301
  4. QUETIAPINE FUMARATE [Suspect]
     Indication: PERSONALITY DISORDER
     Dosage: 200 MG;PO
     Route: 048
     Dates: start: 20081101, end: 20090301
  5. ETHANOL (ETHANOL) [Suspect]
  6. MONTELUKAST SODIUM [Concomitant]

REACTIONS (2)
  - ALCOHOL INTERACTION [None]
  - ALCOHOL POISONING [None]
